FAERS Safety Report 17667692 (Version 2)
Quarter: 2021Q2

REPORT INFORMATION
  Report Type: Report from Study
  Country: US (occurrence: US)
  Receive Date: 20200414
  Receipt Date: 20210618
  Transmission Date: 20210716
  Serious: Yes (Hospitalization)
  Sender: FDA-Public Use
  Company Number: US-JNJFOC-20200408022

PATIENT
  Age: 12 Year
  Sex: Male
  Weight: 34.3 kg

DRUGS (7)
  1. LORATADINE. [Concomitant]
     Active Substance: LORATADINE
  2. CYPROHEPTADINE. [Concomitant]
     Active Substance: CYPROHEPTADINE
  3. FLUTICASONE PROPIONATE. [Concomitant]
     Active Substance: FLUTICASONE PROPIONATE
  4. INFLIXIMAB, RECOMBINANT [Suspect]
     Active Substance: INFLIXIMAB
     Indication: INFLAMMATORY BOWEL DISEASE
     Dosage: LAST DOSE WAS ON 04?MAR?2014
     Route: 042
     Dates: start: 20111209
  5. LIDOCAINE. [Concomitant]
     Active Substance: LIDOCAINE
  6. STELARA [Concomitant]
     Active Substance: USTEKINUMAB
     Route: 065
     Dates: start: 20190921
  7. ENTYVIO [Concomitant]
     Active Substance: VEDOLIZUMAB
     Dosage: LAST DOSE 20?MAR?2019
     Dates: start: 20180411

REACTIONS (1)
  - Crohn^s disease [Recovered/Resolved]

NARRATIVE: CASE EVENT DATE: 20190913
